FAERS Safety Report 9803757 (Version 1)
Quarter: 2014Q1

REPORT INFORMATION
  Report Type: Spontaneous
  Country: US (occurrence: US)
  Receive Date: 20140108
  Receipt Date: 20140108
  Transmission Date: 20141002
  Serious: No
  Sender: FDA-Public Use
  Company Number: US-GLAXOSMITHKLINE-A1034101A

PATIENT
  Age: 79 Year
  Sex: Male

DRUGS (2)
  1. LOVAZA [Suspect]
     Indication: BLOOD CHOLESTEROL INCREASED
     Dosage: 1CAP TWICE PER DAY
     Route: 048
     Dates: start: 201301
  2. OTHER MEDICATIONS [Concomitant]

REACTIONS (1)
  - Dysgeusia [Unknown]
